FAERS Safety Report 9921205 (Version 1)
Quarter: 2014Q1

REPORT INFORMATION
  Report Type: Spontaneous
  Country: US (occurrence: None)
  Receive Date: 20140221
  Receipt Date: 20140221
  Transmission Date: 20141002
  Serious: Yes (Other)
  Sender: FDA-Public Use
  Company Number: None

PATIENT
  Age: 55 Year
  Sex: Male
  Weight: 81.19 kg

DRUGS (2)
  1. HYDROMORPHONE [Suspect]
  2. LORAZEPAM [Concomitant]

REACTIONS (5)
  - Flushing [None]
  - Snoring [None]
  - Scratch [None]
  - Hyperhidrosis [None]
  - Sedation [None]
